FAERS Safety Report 17920488 (Version 8)
Quarter: 2020Q4

REPORT INFORMATION
  Report Type: Spontaneous
  Country: US (occurrence: US)
  Receive Date: 20200621
  Receipt Date: 20201002
  Transmission Date: 20210113
  Serious: No
  Sender: FDA-Public Use
  Company Number: US-GLAXOSMITHKLINE-US2020AMR100063

PATIENT
  Sex: Female

DRUGS (3)
  1. ZEJULA [Suspect]
     Active Substance: NIRAPARIB
     Indication: OVARIAN CANCER
     Dosage: 200 MG, QD
     Dates: start: 20200601
  2. ZEJULA [Suspect]
     Active Substance: NIRAPARIB
     Dosage: 200 MG, QD (AT BEDTIME)
  3. ZEJULA [Suspect]
     Active Substance: NIRAPARIB
     Dosage: UNK (DECREASED)

REACTIONS (18)
  - Discomfort [Not Recovered/Not Resolved]
  - Fatigue [Unknown]
  - Fluid retention [Unknown]
  - Underdose [Unknown]
  - Arthralgia [Unknown]
  - Decreased appetite [Unknown]
  - Nausea [Not Recovered/Not Resolved]
  - Condition aggravated [Unknown]
  - Nervousness [Unknown]
  - Adverse drug reaction [Unknown]
  - Tremor [Not Recovered/Not Resolved]
  - White blood cell count decreased [Not Recovered/Not Resolved]
  - Platelet count decreased [Unknown]
  - Tumour marker increased [Unknown]
  - Asthenia [Not Recovered/Not Resolved]
  - Musculoskeletal discomfort [Unknown]
  - Bone pain [Not Recovered/Not Resolved]
  - Haemorrhoids [Unknown]
